FAERS Safety Report 20679177 (Version 2)
Quarter: 2022Q2

REPORT INFORMATION
  Report Type: Spontaneous
  Country: US (occurrence: US)
  Receive Date: 20220406
  Receipt Date: 20220617
  Transmission Date: 20220721
  Serious: Yes (Hospitalization, Other)
  Sender: FDA-Public Use
  Company Number: US-BAYER-2022A049274

PATIENT
  Age: 33 Year
  Sex: Female

DRUGS (1)
  1. SKYLA [Suspect]
     Active Substance: LEVONORGESTREL
     Dosage: 14?G/DAY
     Route: 015
     Dates: start: 20200414, end: 20201125

REACTIONS (6)
  - Embedded device [None]
  - Vulvovaginal rash [Recovered/Resolved]
  - Abdominal pain lower [Recovered/Resolved]
  - Cystitis interstitial [Not Recovered/Not Resolved]
  - Pelvic floor dysfunction [Not Recovered/Not Resolved]
  - Genito-pelvic pain/penetration disorder [Not Recovered/Not Resolved]

NARRATIVE: CASE EVENT DATE: 20200916
